FAERS Safety Report 6050664-4 (Version None)
Quarter: 2009Q1

REPORT INFORMATION
  Report Type: 
  Country: None (occurrence: None)
  Receive Date: 20090126
  Receipt Date: 20090119
  Transmission Date: 20090719
  Serious: Yes (Other)
  Sender: FDA-Public Use
  Company Number: US-ELI_LILLY_AND_COMPANY-US200811002765

PATIENT
  Sex: Female

DRUGS (6)
  1. HUMALOG [Suspect]
     Dosage: UNK, UNK
  2. HUMULIN 70/30 [Suspect]
  3. SYNTHROID [Concomitant]
  4. ADALAT [Concomitant]
  5. DIOVAN [Concomitant]
  6. ASPIRIN [Concomitant]

REACTIONS (3)
  - BLINDNESS UNILATERAL [None]
  - HYPOACUSIS [None]
  - MUSCULAR WEAKNESS [None]
